FAERS Safety Report 20631147 (Version 1)
Quarter: 2022Q1

REPORT INFORMATION
  Report Type: Spontaneous
  Country: US (occurrence: US)
  Receive Date: 20220324
  Receipt Date: 20220324
  Transmission Date: 20220424
  Serious: Yes (Hospitalization)
  Sender: FDA-Public Use
  Company Number: US-LAT-201630317823Em

PATIENT

DRUGS (2)
  1. DARZALEX [Suspect]
     Active Substance: DARATUMUMAB
     Indication: Primary amyloidosis
     Route: 065
  2. DEXAMETHASONE [Suspect]
     Active Substance: DEXAMETHASONE
     Indication: Primary amyloidosis
     Route: 065

REACTIONS (9)
  - Anaphylactoid reaction [Unknown]
  - Infusion related reaction [Unknown]
  - Infection [Unknown]
  - Myocardial infarction [Unknown]
  - Syncope [Unknown]
  - Hypervolaemia [Unknown]
  - Upper respiratory tract infection [Unknown]
  - Product use in unapproved indication [Unknown]
  - Off label use [Unknown]
